FAERS Safety Report 6959666-4 (Version None)
Quarter: 2010Q3

REPORT INFORMATION
  Report Type: 
  Country: None (occurrence: None)
  Receive Date: 20100823
  Receipt Date: 20100721
  Transmission Date: 20110219
  Serious: No
  Sender: FDA-Public Use
  Company Number: 016053

PATIENT
  Sex: Female
  Weight: 74.8 kg

DRUGS (6)
  1. CIMZIA [Suspect]
     Indication: CROHN'S DISEASE
     Dosage: (400 MG 1X/2 WEEKS SUBCUTANEOUS) ; (400 MG 1X/2 WEEKS SUBCUTANEOUS)
     Route: 058
     Dates: start: 20090707
  2. CIMZIA [Suspect]
     Indication: CROHN'S DISEASE
     Dosage: (400 MG 1X/2 WEEKS SUBCUTANEOUS) ; (400 MG 1X/2 WEEKS SUBCUTANEOUS)
     Route: 058
     Dates: start: 20100721
  3. PLAQUENIL [Concomitant]
  4. ACETYLSALICYLIC ACID [Concomitant]
  5. OMEPRAZOLE [Concomitant]
  6. IBANDRONATE SODIUM [Concomitant]

REACTIONS (2)
  - DIARRHOEA [None]
  - FLATULENCE [None]
